FAERS Safety Report 6235295-5 (Version None)
Quarter: 2009Q2

REPORT INFORMATION
  Report Type: 
  Country: None (occurrence: None)
  Receive Date: 20090618
  Receipt Date: 20090528
  Transmission Date: 20091009
  Serious: Yes (Hospitalization)
  Sender: FDA-Public Use
  Company Number: JP-ASTRAZENECA-2009AC00814

PATIENT
  Age: 59 Year
  Sex: Female

DRUGS (9)
  1. MEROPEN [Suspect]
     Indication: URINARY TRACT INFECTION
     Dates: start: 20070828, end: 20070830
  2. MEROPEN [Suspect]
     Indication: BACTERAEMIA
     Dates: start: 20070828, end: 20070830
  3. MEROPEN [Suspect]
     Dates: start: 20070902, end: 20070903
  4. MEROPEN [Suspect]
     Dates: start: 20070902, end: 20070903
  5. VICCILLIN [Suspect]
     Indication: URINARY TRACT INFECTION
     Dates: start: 20070830, end: 20070901
  6. VICCILLIN [Suspect]
     Indication: BACTERAEMIA
     Dates: start: 20070830, end: 20070901
  7. ERIL [Concomitant]
     Indication: SUBARACHNOID HAEMORRHAGE
     Dates: start: 20070814, end: 20070828
  8. GASTER [Concomitant]
     Indication: GASTRITIS
     Dates: start: 20070815, end: 20070829
  9. FOSMICIN-S [Concomitant]
     Indication: BACTERAEMIA
     Dates: start: 20070904, end: 20070907

REACTIONS (1)
  - ACUTE GENERALISED EXANTHEMATOUS PUSTULOSIS [None]
